FAERS Safety Report 23229959 (Version 2)
Quarter: 2023Q4

REPORT INFORMATION
  Report Type: Spontaneous
  Country: ES (occurrence: ES)
  Receive Date: 20231127
  Receipt Date: 20231223
  Transmission Date: 20240110
  Serious: Yes (Hospitalization, Other)
  Sender: FDA-Public Use
  Company Number: ES-ABBVIE-5506605

PATIENT
  Age: 42 Year
  Sex: Male
  Weight: 99.6 kg

DRUGS (2)
  1. RINVOQ [Suspect]
     Active Substance: UPADACITINIB
     Indication: Rheumatoid arthritis
     Route: 048
     Dates: start: 202209, end: 20230918
  2. LEFLUNOMIDE [Concomitant]
     Active Substance: LEFLUNOMIDE
     Indication: Rheumatoid arthritis
     Route: 048
     Dates: start: 202207, end: 20230918

REACTIONS (7)
  - Pleurisy [Recovered/Resolved]
  - Embolism venous [Recovered/Resolved]
  - Deep vein thrombosis [Unknown]
  - Pulmonary embolism [Unknown]
  - Tachycardia [Unknown]
  - Pulmonary arteriopathy [Unknown]
  - Arterial disorder [Unknown]

NARRATIVE: CASE EVENT DATE: 20230901
